FAERS Safety Report 16714213 (Version 3)
Quarter: 2020Q2

REPORT INFORMATION
  Report Type: Report from Study
  Country: CA (occurrence: CA)
  Receive Date: 20190819
  Receipt Date: 20200401
  Transmission Date: 20200713
  Serious: Yes (Other)
  Sender: FDA-Public Use
  Company Number: CA-BRISTOL-MYERS SQUIBB COMPANY-BMS-2019-078225

PATIENT
  Age: 69 Year
  Sex: Female

DRUGS (1)
  1. ABATACEPT [Suspect]
     Active Substance: ABATACEPT
     Indication: RHEUMATOID ARTHRITIS
     Dosage: 500 MILLIGRAM, Q4WK
     Route: 042
     Dates: start: 20101025

REACTIONS (4)
  - Pain [Unknown]
  - Peripheral swelling [Unknown]
  - Cataract [Unknown]
  - Gastroenteritis viral [Recovering/Resolving]

NARRATIVE: CASE EVENT DATE: 20191005
